FAERS Safety Report 22250781 (Version 1)
Quarter: 2023Q2

REPORT INFORMATION
  Report Type: Spontaneous
  Country: JP (occurrence: JP)
  Receive Date: 20230425
  Receipt Date: 20230425
  Transmission Date: 20230721
  Serious: Yes (Life-Threatening)
  Sender: FDA-Public Use
  Company Number: JP-shionogi-202304268_MUL_P_1

PATIENT
  Sex: Male

DRUGS (1)
  1. MULPLETA [Suspect]
     Active Substance: LUSUTROMBOPAG
     Indication: Hepatic cancer
     Dosage: 3 MG, QD
     Route: 048
     Dates: start: 20230412, end: 20230413

REACTIONS (1)
  - Ileus [Recovering/Resolving]

NARRATIVE: CASE EVENT DATE: 20230413
